FAERS Safety Report 6564959-9 (Version None)
Quarter: 2010Q1

REPORT INFORMATION
  Report Type: 
  Country: None (occurrence: None)
  Receive Date: 20100201
  Receipt Date: 20100125
  Transmission Date: 20100710
  Serious: No
  Sender: FDA-Public Use
  Company Number: US-B.I. PHARMACEUTICALS,INC./RIDGEFIELD-2010-BP-01011BP

PATIENT
  Sex: Female

DRUGS (8)
  1. SPIRIVA [Suspect]
     Indication: EMPHYSEMA
     Dosage: 18 MCG
     Route: 055
     Dates: start: 20070101
  2. COUMADIN [Concomitant]
     Indication: HEART RATE IRREGULAR
  3. ATENOLOL [Concomitant]
     Indication: HEART RATE IRREGULAR
  4. DIGOXIN [Concomitant]
     Indication: HEART RATE IRREGULAR
  5. QUINIDINE HCL [Concomitant]
     Indication: HEART RATE IRREGULAR
  6. EVISTA [Concomitant]
     Indication: OSTEOPOROSIS
  7. OS-CAL [Concomitant]
     Indication: PROPHYLAXIS
  8. ENALAPRIL MALEATE [Concomitant]
     Indication: HYPERTENSION

REACTIONS (3)
  - DRY MOUTH [None]
  - DYSURIA [None]
  - PAIN [None]
